FAERS Safety Report 14317779 (Version 1)
Quarter: 2017Q4

REPORT INFORMATION
  Report Type: Spontaneous
  Country: ES (occurrence: ES)
  Receive Date: 20171222
  Receipt Date: 20171222
  Transmission Date: 20180321
  Serious: Yes (Hospitalization)
  Sender: FDA-Public Use
  Company Number: ES-PFIZER INC-2017544267

PATIENT
  Age: 37 Year
  Sex: Female

DRUGS (1)
  1. CARBOPLATINO PHARMACIA [Suspect]
     Active Substance: CARBOPLATIN
     Indication: OVARIAN CANCER
     Dosage: 400 MG/M2 EVERY 3 WEEKS (10? CYCLE)
     Route: 042
     Dates: start: 201605, end: 20170125

REACTIONS (1)
  - Haemolytic anaemia [Recovered/Resolved]

NARRATIVE: CASE EVENT DATE: 20170127
